FAERS Safety Report 12356448 (Version 1)
Quarter: 2016Q2

REPORT INFORMATION
  Report Type: Report from Study
  Country: US (occurrence: US)
  Receive Date: 20160511
  Receipt Date: 20160511
  Transmission Date: 20160815
  Serious: Yes (Hospitalization)
  Sender: FDA-Public Use
  Company Number: US-BIOGEN-2011BI040068

PATIENT
  Age: 48 Year
  Sex: Male

DRUGS (1)
  1. AVONEX [Suspect]
     Active Substance: INTERFERON BETA-1A
     Indication: MULTIPLE SCLEROSIS
     Route: 030
     Dates: start: 19970101

REACTIONS (10)
  - Stress [Not Recovered/Not Resolved]
  - Memory impairment [Not Recovered/Not Resolved]
  - Multiple sclerosis [Not Recovered/Not Resolved]
  - Temperature difference of extremities [Not Recovered/Not Resolved]
  - Influenza like illness [Recovered/Resolved]
  - Malaise [Not Recovered/Not Resolved]
  - Myocardial infarction [Recovered/Resolved]
  - Chest pain [Unknown]
  - Dizziness [Unknown]
  - Heart rate increased [Unknown]

NARRATIVE: CASE EVENT DATE: 201109
